FAERS Safety Report 23093705 (Version 1)
Quarter: 2023Q4

REPORT INFORMATION
  Report Type: Spontaneous
  Country: US (occurrence: None)
  Receive Date: 20231023
  Receipt Date: 20231023
  Transmission Date: 20240110
  Serious: No
  Sender: FDA-Public Use
  Company Number: 2023A220623

PATIENT
  Age: 21328 Day

DRUGS (2)
  1. BYDUREON BCISE [Suspect]
     Active Substance: EXENATIDE
     Route: 058
  2. BYDUREON [Suspect]
     Active Substance: EXENATIDE
     Route: 058

REACTIONS (8)
  - Off label use [Unknown]
  - Asthenia [Unknown]
  - Blood glucose decreased [Recovered/Resolved]
  - Nightmare [Recovered/Resolved]
  - Dizziness [Recovered/Resolved]
  - Rhinorrhoea [Unknown]
  - Pollakiuria [Unknown]
  - Asthenia [Unknown]
